FAERS Safety Report 17248663 (Version 3)
Quarter: 2022Q1

REPORT INFORMATION
  Report Type: Spontaneous
  Country: FR (occurrence: FR)
  Receive Date: 20200108
  Receipt Date: 20220124
  Transmission Date: 20220423
  Serious: Yes (Hospitalization, Other)
  Sender: FDA-Public Use
  Company Number: FR-MYLANLABS-2019M1126670

PATIENT
  Age: 43 Year
  Sex: Male

DRUGS (9)
  1. PREZISTA [Suspect]
     Active Substance: DARUNAVIR ETHANOLATE
     Indication: HIV infection
     Dosage: 800 MILLIGRAM
     Route: 048
  2. ETHAMBUTOL [Suspect]
     Active Substance: ETHAMBUTOL HYDROCHLORIDE
     Indication: Tuberculosis
     Route: 065
     Dates: start: 201808
  3. PYRAZINAMIDE [Suspect]
     Active Substance: PYRAZINAMIDE
     Indication: Tuberculosis
     Route: 065
     Dates: start: 201808
  4. RITONAVIR [Suspect]
     Active Substance: RITONAVIR
     Indication: HIV infection
     Route: 065
  5. ISONIAZID [Suspect]
     Active Substance: ISONIAZID
     Indication: Tuberculosis
     Route: 065
     Dates: start: 201808
  6. RIFAMPIN [Suspect]
     Active Substance: RIFAMPIN
     Indication: Tuberculosis
     Route: 065
     Dates: start: 201808
  7. COTRIMOXAZOLE [Suspect]
     Active Substance: SULFAMETHOXAZOLE\TRIMETHOPRIM
     Indication: HIV infection
     Route: 065
  8. ABACAVIR\LAMIVUDINE [Suspect]
     Active Substance: ABACAVIR\LAMIVUDINE
     Indication: HIV infection
     Route: 065
  9. BACTRIM [Concomitant]
     Active Substance: SULFAMETHOXAZOLE\TRIMETHOPRIM
     Indication: Product used for unknown indication
     Dosage: 800 MILLIGRAM, QD
     Route: 065

REACTIONS (5)
  - Lymphadenopathy [Recovering/Resolving]
  - Paradoxical drug reaction [Recovering/Resolving]
  - Immune reconstitution inflammatory syndrome associated tuberculosis [Recovering/Resolving]
  - Immune reconstitution inflammatory syndrome [Recovering/Resolving]
  - Drug ineffective [Unknown]
